FAERS Safety Report 5372719-X (Version None)
Quarter: 2007Q2

REPORT INFORMATION
  Report Type: 
  Country: None (occurrence: None)
  Receive Date: 20070619
  Receipt Date: 20060426
  Transmission Date: 20071010
  Serious: Yes (Other)
  Sender: FDA-Public Use
  Company Number: WAES 0604USA02301

PATIENT
  Age: 73 Year
  Sex: Female
  Weight: 77.5651 kg

DRUGS (11)
  1. COZAAR [Suspect]
     Indication: CARDIAC FAILURE CONGESTIVE
     Dosage: 50 MG DAILY/PO
     Route: 048
     Dates: start: 20040701, end: 20060403
  2. COREG [Concomitant]
  3. COUMADIN [Concomitant]
  4. GLIPIZIDE [Concomitant]
  5. LASIX [Concomitant]
  6. NORVASC [Concomitant]
  7. PRAVACHOL [Concomitant]
  8. RESTORIL [Concomitant]
  9. ZOLOFT [Concomitant]
  10. DICLOFENAC SODIUM [Concomitant]
  11. DIGOXIN [Concomitant]

REACTIONS (2)
  - ANGIOEDEMA [None]
  - URTICARIA [None]
